FAERS Safety Report 5573444-2 (Version None)
Quarter: 2007Q4

REPORT INFORMATION
  Report Type: 
  Country: None (occurrence: None)
  Receive Date: 20071220
  Receipt Date: 20071220
  Transmission Date: 20080405
  Serious: Yes (Hospitalization)
  Sender: FDA-Public Use
  Company Number: None

PATIENT
  Sex: Male
  Weight: 92.5 kg

DRUGS (2)
  1. XELODA [Suspect]
     Dosage: 85200 MG
  2. ELOXATIN [Suspect]
     Dosage: 530 MG

REACTIONS (5)
  - INFECTION [None]
  - NEUTROPHIL COUNT ABNORMAL [None]
  - PHLEBITIS [None]
  - THROMBOSIS [None]
  - URETERIC OBSTRUCTION [None]
